FAERS Safety Report 12287679 (Version 2)
Quarter: 2016Q2

REPORT INFORMATION
  Report Type: Spontaneous
  Country: JP (occurrence: JP)
  Receive Date: 20160420
  Receipt Date: 20160503
  Transmission Date: 20160815
  Serious: Yes (Hospitalization)
  Sender: FDA-Public Use
  Company Number: JP-009507513-1604JPN010645

PATIENT
  Age: 72 Year
  Sex: Female
  Weight: 40 kg

DRUGS (3)
  1. AMLODIPINE BESYLATE. [Suspect]
     Active Substance: AMLODIPINE BESYLATE
     Dosage: 5 MG PER DAY, DIVIDED DOSE FREQUENCY UNKNOWN
     Route: 048
  2. FUROSEMIDE. [Suspect]
     Active Substance: FUROSEMIDE
     Dosage: 40 MG PER DAY, DIVIDED DOSE FREQUENCY UNKNOWN; FORMULATION: POR
     Route: 048
  3. LOSARTAN POTASSIUM. [Suspect]
     Active Substance: LOSARTAN POTASSIUM
     Indication: HYPERTENSION
     Dosage: 50 MG PER DAY, DIVIDED DOSE FREQUENCY UNKNOWN
     Route: 048

REACTIONS (3)
  - Cerebral ischaemia [Recovering/Resolving]
  - Altered state of consciousness [Recovering/Resolving]
  - Renal impairment [Recovering/Resolving]
